FAERS Safety Report 13392861 (Version 1)
Quarter: 2017Q1

REPORT INFORMATION
  Report Type: Report from Study
  Country: JP (occurrence: JP)
  Receive Date: 20170331
  Receipt Date: 20170331
  Transmission Date: 20170429
  Serious: Yes (Hospitalization, Other)
  Sender: FDA-Public Use
  Company Number: JP-AMGEN-JPNCT2017050149

PATIENT
  Age: 70 Year
  Sex: Male
  Weight: 61 kg

DRUGS (20)
  1. LIXIANA [Concomitant]
     Active Substance: EDOXABAN TOSILATE MONOHYDRATE
     Indication: THROMBOSIS IN DEVICE
     Dosage: 30 MG, QD
     Route: 048
     Dates: start: 20170201
  2. MINOMYCIN [Concomitant]
     Active Substance: MINOCYCLINE HYDROCHLORIDE
     Indication: PROPHYLAXIS
     Dosage: 2 DF, BID
     Route: 048
     Dates: start: 20170210, end: 20170304
  3. TAKECAB [Concomitant]
     Active Substance: VONOPRAZAN FUMURATE
     Indication: PROPHYLAXIS
     Dosage: 2 DF, QD
     Route: 048
     Dates: start: 20170210, end: 20170304
  4. PHELLOBERIN [Concomitant]
     Active Substance: BERBERINE\GERANIUM
     Indication: ILEOSTOMY
     Dosage: 2 DF, TID
     Route: 048
     Dates: start: 20170127
  5. 5-FU [Suspect]
     Active Substance: FLUOROURACIL
     Dosage: 360 MG, Q2WEEKS
     Route: 040
     Dates: start: 20170224
  6. CALCIUM LEVOFOLINATE [Concomitant]
     Active Substance: LEVOLEUCOVORIN CALCIUM
     Indication: RECTOSIGMOID CANCER
     Dosage: 350 MG, Q2WEEKS
     Route: 041
     Dates: start: 20170210
  7. NOVORAPID [Concomitant]
     Active Substance: INSULIN ASPART
     Indication: DIABETES MELLITUS
     Dosage: 4 IU, TID
     Route: 058
     Dates: start: 20170128, end: 20170304
  8. BIO-THREE [Concomitant]
     Active Substance: HERBALS
     Indication: ILEOSTOMY
     Dosage: 2 DF, TID
     Route: 048
     Dates: start: 20170107
  9. 5-FU [Suspect]
     Active Substance: FLUOROURACIL
     Dosage: 3640 MG, Q2WEEKS
     Route: 041
     Dates: start: 20170224
  10. PAPAVER SOMNIFERUM TINCTURE [Concomitant]
     Indication: ILEOSTOMY
     Dosage: 1 G, TID
     Route: 048
     Dates: start: 20170201
  11. PANITUMUMAB [Suspect]
     Active Substance: PANITUMUMAB
     Indication: RECTOSIGMOID CANCER
     Dosage: 440 MG, Q2WK
     Route: 041
     Dates: start: 20170210
  12. 5-FU [Suspect]
     Active Substance: FLUOROURACIL
     Dosage: 4350 MG, Q2WEEKS
     Route: 041
     Dates: start: 20170210, end: 20170210
  13. LANTUS [Concomitant]
     Active Substance: INSULIN GLARGINE
     Indication: DIABETES MELLITUS
     Dosage: 4 IU, QD
     Route: 058
     Dates: start: 20170227, end: 20170304
  14. OXALIPLATIN. [Suspect]
     Active Substance: OXALIPLATIN
     Indication: RECTOSIGMOID CANCER
     Dosage: 150 MG, Q2WEEKS
     Route: 041
     Dates: start: 20170210, end: 20170210
  15. 5-FU [Suspect]
     Active Substance: FLUOROURACIL
     Indication: RECTOSIGMOID CANCER
     Dosage: 700 MG, Q2WEEKS
     Route: 040
     Dates: start: 20170210, end: 20170210
  16. LIXIANA [Concomitant]
     Active Substance: EDOXABAN TOSILATE MONOHYDRATE
     Indication: DEEP VEIN THROMBOSIS
  17. OXALIPLATIN. [Suspect]
     Active Substance: OXALIPLATIN
     Dosage: 118 MG, Q2WEEKS
     Route: 041
     Dates: start: 20170224
  18. AMLODIPINE [Concomitant]
     Active Substance: AMLODIPINE BESYLATE
     Indication: HYPERTENSION
     Dosage: 1 DF, QD
     Route: 048
     Dates: start: 20170107, end: 20170304
  19. AVAPRO [Concomitant]
     Active Substance: IRBESARTAN
     Indication: HYPERTENSION
     Dosage: 1 DF, QD
     Route: 048
     Dates: start: 20170107, end: 20170304
  20. BISOPROLOL FUMARATE. [Concomitant]
     Active Substance: BISOPROLOL FUMARATE
     Indication: HYPERTENSION
     Dosage: 1 DF, QD
     Route: 048
     Dates: start: 20170107, end: 20170304

REACTIONS (3)
  - Hyperkalaemia [Not Recovered/Not Resolved]
  - Acute kidney injury [Not Recovered/Not Resolved]
  - Diarrhoea [Not Recovered/Not Resolved]

NARRATIVE: CASE EVENT DATE: 20170305
